FAERS Safety Report 6433505-2 (Version None)
Quarter: 2009Q4

REPORT INFORMATION
  Report Type: 
  Country: None (occurrence: None)
  Receive Date: 20091106
  Receipt Date: 20091106
  Transmission Date: 20100525
  Serious: No
  Sender: FDA-Public Use
  Company Number: None

PATIENT
  Age: 66 Year
  Sex: Male
  Weight: 140.7 kg

DRUGS (3)
  1. AMOXICILLIN AND CLAVULANATE POTASSIUM [Suspect]
     Indication: CELLULITIS
     Dosage: 875/125 MG BID PO
     Route: 048
     Dates: start: 20090501, end: 20090504
  2. AMOXICILLIN AND CLAVULANATE POTASSIUM [Suspect]
     Indication: OSTEOMYELITIS
     Dosage: 875/125 MG BID PO
     Route: 048
     Dates: start: 20090501, end: 20090504
  3. AMOXICILLIN AND CLAVULANATE POTASSIUM [Suspect]
     Indication: TOE AMPUTATION
     Dosage: 875/125 MG BID PO
     Route: 048
     Dates: start: 20090501, end: 20090504

REACTIONS (3)
  - HAEMODIALYSIS [None]
  - RASH [None]
  - RENAL FAILURE ACUTE [None]
